FAERS Safety Report 20281499 (Version 1)
Quarter: 2022Q1

REPORT INFORMATION
  Report Type: Report from Study
  Country: CL (occurrence: CL)
  Receive Date: 20220103
  Receipt Date: 20220103
  Transmission Date: 20220423
  Serious: Yes (Other)
  Sender: FDA-Public Use
  Company Number: CL-NOVARTISPH-NVSC2021CL299213

PATIENT
  Sex: Female
  Weight: 22 kg

DRUGS (1)
  1. OMNITROPE [Suspect]
     Active Substance: SOMATROPIN
     Indication: Turner^s syndrome
     Dosage: 10MG/1.0MG, QD
     Route: 058
     Dates: start: 20210921

REACTIONS (2)
  - Renal injury [Unknown]
  - Vesicoureteric reflux [Unknown]
